FAERS Safety Report 8238660-X (Version None)
Quarter: 2012Q1

REPORT INFORMATION
  Report Type: 
  Country: None (occurrence: None)
  Receive Date: 20120327
  Receipt Date: 20120319
  Transmission Date: 20120608
  Serious: Yes (Hospitalization)
  Sender: FDA-Public Use
  Company Number: FR-FRI-1000029363

PATIENT
  Sex: Male

DRUGS (8)
  1. ARICEPT [Concomitant]
     Dosage: 10 MG
     Route: 048
     Dates: start: 20100501
  2. PLAVIX [Suspect]
     Dosage: 75 MG
     Route: 048
     Dates: start: 20100501
  3. MEMANTINE HYDROCHLORIDE [Concomitant]
     Dosage: 20 MG
     Route: 048
     Dates: start: 20100501
  4. ALLOPURINOL [Concomitant]
     Dosage: 200 MG
     Route: 048
     Dates: start: 20100501
  5. PERMIXON [Concomitant]
     Dosage: 320 MG
     Route: 048
     Dates: start: 20100501
  6. FLUTICASONE PROPIONATE/SALMETEROL [Concomitant]
     Dosage: 250/25 A?GRAMS/DOSE - 2 DOSES DAILY
     Route: 045
     Dates: start: 20100501
  7. CITALOPRAM HYDROBROMIDE [Suspect]
     Dosage: 20 MG
     Route: 048
     Dates: start: 20100501
  8. CETIRIZINE HCL [Concomitant]
     Dosage: 10 MG
     Route: 048
     Dates: start: 20100501

REACTIONS (2)
  - MELAENA [None]
  - HAEMATEMESIS [None]
